FAERS Safety Report 16042947 (Version 1)
Quarter: 2019Q1

REPORT INFORMATION
  Report Type: Spontaneous
  Country: AU (occurrence: AU)
  Receive Date: 20190306
  Receipt Date: 20190306
  Transmission Date: 20190418
  Serious: Yes (Other)
  Sender: FDA-Public Use
  Company Number: AU-SEPTODONT-201905052

PATIENT
  Age: 47 Year
  Sex: Female

DRUGS (2)
  1. TEGRETOL [Interacting]
     Active Substance: CARBAMAZEPINE
  2. SCANDONEST 3% (MEPIVACAINE HYDROCHLORIDE0) [Suspect]
     Active Substance: MEPIVACAINE HYDROCHLORIDE
     Indication: DENTAL LOCAL ANAESTHESIA

REACTIONS (5)
  - Tachycardia [Unknown]
  - Tremor [Unknown]
  - Feeling abnormal [Unknown]
  - Seizure [Unknown]
  - Hot flush [Unknown]
